FAERS Safety Report 12184823 (Version 2)
Quarter: 2016Q1

REPORT INFORMATION
  Report Type: Spontaneous
  Country: JP (occurrence: JP)
  Receive Date: 20160316
  Receipt Date: 20160324
  Transmission Date: 20160526
  Serious: Yes (Death)
  Sender: FDA-Public Use
  Company Number: JP-SA-2016SA053568

PATIENT
  Age: 69 Year
  Sex: Male

DRUGS (2)
  1. ELPLAT [Suspect]
     Active Substance: OXALIPLATIN
     Indication: GASTRIC CANCER
     Dosage: FORM: INFUSION SOLUTION INJECTION.
     Route: 041
     Dates: start: 20160310, end: 20160310
  2. XELODA [Concomitant]
     Active Substance: CAPECITABINE
     Dates: start: 20160310

REACTIONS (1)
  - Pulmonary alveolar haemorrhage [Fatal]

NARRATIVE: CASE EVENT DATE: 20160310
